FAERS Safety Report 4728743-0 (Version None)
Quarter: 2005Q3

REPORT INFORMATION
  Report Type: 
  Country: None (occurrence: None)
  Receive Date: 20050729
  Receipt Date: 20050727
  Transmission Date: 20060218
  Serious: Yes (Congenital Anomaly)
  Sender: FDA-Public Use
  Company Number: US-GLAXOSMITHKLINE-A0567845A

PATIENT
  Age: 0 Year
  Sex: Male
  Weight: 3.4 kg

DRUGS (4)
  1. LAMICTAL [Suspect]
     Indication: BIPOLAR DISORDER
  2. TEGRETOL [Concomitant]
     Indication: BIPOLAR DISORDER
  3. ZITHROMAX [Concomitant]
     Dates: start: 20041101, end: 20041106
  4. AMOXICILLIN [Concomitant]
     Dates: start: 20050110, end: 20050120

REACTIONS (2)
  - CONGENITAL FOOT MALFORMATION [None]
  - DRUG EXPOSURE DURING PREGNANCY [None]
